FAERS Safety Report 8079926-6 (Version None)
Quarter: 2012Q1

REPORT INFORMATION
  Report Type: 
  Country: None (occurrence: None)
  Receive Date: 20120128
  Receipt Date: 20110722
  Transmission Date: 20120608
  Serious: No
  Sender: FDA-Public Use
  Company Number: US-ABBOTT-11P-163-0841268-00

PATIENT
  Age: 35 Year
  Sex: Female

DRUGS (14)
  1. HUMIRA [Suspect]
     Indication: RHEUMATOID ARTHRITIS
     Dates: start: 20110623
  2. CYMBALTA [Concomitant]
     Indication: DEPRESSION
  3. METHOTREXATE [Concomitant]
     Indication: RHEUMATOID ARTHRITIS
     Dosage: EIGHT TABLETS ON MONDAYS
  4. OMEPRAZOLE [Concomitant]
     Indication: DYSPEPSIA
  5. HYDROXYCHLOROQUINE SULFATE [Concomitant]
     Indication: GASTRIC DISORDER
     Dosage: AFTER EATING
  6. FOLIC ACID [Concomitant]
     Indication: SUPPLEMENTATION THERAPY
  7. PREDNISONE TAB [Concomitant]
     Indication: RHEUMATOID ARTHRITIS
  8. CALCIUM +VIT D [Concomitant]
     Indication: VITAMIN SUPPLEMENTATION
  9. VIT C [Concomitant]
     Indication: VITAMIN SUPPLEMENTATION
  10. LEUCOVORIN CALCIUM [Concomitant]
     Indication: THERAPEUTIC PROCEDURE
     Dosage: ON TUESDAY
  11. VERAMIST NASAL SPRAY [Concomitant]
     Indication: SINUS DISORDER
     Dosage: ONE SPRAY EACH NOSTRIL
     Route: 045
  12. CYMBALTA [Concomitant]
     Indication: FIBROMYALGIA
  13. ALBUTERAL PROAIR INHALER [Concomitant]
     Indication: ASTHMA EXERCISE INDUCED
  14. VERAMIST NASAL SPRAY [Concomitant]
     Indication: HYPERSENSITIVITY

REACTIONS (3)
  - INJECTION SITE PRURITUS [None]
  - INJECTION SITE ERYTHEMA [None]
  - INJECTION SITE WARMTH [None]
